FAERS Safety Report 7549961-2 (Version None)
Quarter: 2011Q2

REPORT INFORMATION
  Report Type: 
  Country: None (occurrence: None)
  Receive Date: 20110615
  Receipt Date: 20110610
  Transmission Date: 20111010
  Serious: Yes (Hospitalization, Other)
  Sender: FDA-Public Use
  Company Number: JP-PFIZER INC-2011099351

PATIENT
  Age: 61 Year
  Sex: Male

DRUGS (12)
  1. ROHYPNOL [Suspect]
     Indication: INSOMNIA
     Dosage: 1 MG DAILY
     Route: 048
     Dates: start: 20070401, end: 20110527
  2. FAMOTIDINE [Concomitant]
     Indication: GASTRIC ULCER
     Dosage: 40 MG DAILY
     Route: 048
     Dates: start: 20070401
  3. LYRICA [Suspect]
     Indication: DIABETIC NEUROPATHY
     Dosage: 150 MG DAILY
     Route: 048
     Dates: start: 20110125, end: 20110426
  4. GRANISETRON [Concomitant]
     Dosage: 3 MG
     Route: 041
     Dates: start: 20110401, end: 20110415
  5. TS-1 [Concomitant]
     Dosage: 60 MG, 2X/DAY
     Route: 048
     Dates: start: 20110401, end: 20110414
  6. INSULIN [Concomitant]
     Indication: TYPE 2 DIABETES MELLITUS
     Dosage: 68 UNITS DAILY
     Route: 058
     Dates: start: 20080601
  7. VOLTAREN [Concomitant]
     Dosage: 25 MG DAILY
     Route: 048
     Dates: start: 20070401
  8. CPT-11 [Concomitant]
     Dosage: 170 MG
     Route: 041
     Dates: start: 20110401, end: 20110415
  9. PREDNISOLONE [Suspect]
     Indication: INTERSTITIAL LUNG DISEASE
     Dosage: 12.5 MG DAILY
     Route: 048
     Dates: start: 20080601
  10. HANGE-SHASHIN-TO [Concomitant]
     Indication: NERVOUS SYSTEM DISORDER
     Dosage: 7.5 G DAILY
     Route: 048
     Dates: start: 20110204
  11. MICARDIS [Concomitant]
     Dosage: 40 MG DAILY
     Route: 048
     Dates: start: 20070401
  12. ALFAROL [Concomitant]
     Dosage: 1 MICROGRAM DAILY
     Route: 048
     Dates: start: 20070401

REACTIONS (2)
  - BLOOD GLUCOSE INCREASED [None]
  - LOSS OF CONSCIOUSNESS [None]
